FAERS Safety Report 6459039-7 (Version None)
Quarter: 2009Q4

REPORT INFORMATION
  Report Type: 
  Country: None (occurrence: None)
  Receive Date: 20091127
  Receipt Date: 20091026
  Transmission Date: 20100525
  Serious: No
  Sender: FDA-Public Use
  Company Number: US-BAYER-200937587NA

PATIENT
  Sex: Female

DRUGS (2)
  1. YAZ [Suspect]
     Indication: MENSTRUATION IRREGULAR
     Dates: start: 20090901
  2. PARAGARD T 380A [Concomitant]
     Route: 015

REACTIONS (2)
  - FEELING ABNORMAL [None]
  - VAGINAL HAEMORRHAGE [None]
